FAERS Safety Report 17442799 (Version 1)
Quarter: 2020Q3

REPORT INFORMATION
  Report Type: Other
  Country: IE (occurrence: IE)
  Receive Date: 20200220
  Receipt Date: 20200220
  Transmission Date: 20201105
  Serious: Yes (Death, Hospitalization, Other)
  Sender: FDA-Public Use
  Company Number: IE-CELLTRION INC.-2020IE019177

PATIENT

DRUGS (4)
  1. RITUXIMAB (UNKNOWN) [Suspect]
     Active Substance: RITUXIMAB
     Indication: DIFFUSE LARGE B-CELL LYMPHOMA REFRACTORY
     Dosage: 730 MG, 21 DAYS
     Route: 042
     Dates: start: 20191219
  2. POLATUZUMAB VEDOTIN. [Suspect]
     Active Substance: POLATUZUMAB VEDOTIN
     Indication: DIFFUSE LARGE B-CELL LYMPHOMA REFRACTORY
     Dosage: 136 MG, 3 WEEKS
     Route: 042
     Dates: start: 20191219
  3. POLATUZUMAB VEDOTIN. [Suspect]
     Active Substance: POLATUZUMAB VEDOTIN
     Indication: LYMPHOMA
     Dosage: 1.8 MG/KG, 3 WEEKS
     Route: 042
  4. RITUXIMAB (UNKNOWN) [Suspect]
     Active Substance: RITUXIMAB
     Indication: LYMPHOMA
     Dosage: 375 MG/M2
     Route: 042

REACTIONS (5)
  - Underdose [Unknown]
  - Lower respiratory tract infection [Unknown]
  - Disease progression [Fatal]
  - Renal impairment [Fatal]
  - Pneumonia [Fatal]

NARRATIVE: CASE EVENT DATE: 20200109
